FAERS Safety Report 8735307 (Version 3)
Quarter: 2012Q4

REPORT INFORMATION
  Report Type: 
  Country: JP (occurrence: JP)
  Receive Date: 20120822
  Receipt Date: 20121221
  Transmission Date: 20130627
  Serious: Yes (Hospitalization, Other)
  Sender: FDA-Public Use
  Company Number: JP-009507513-1208JPN005186

PATIENT
  Age: 68 Year
  Sex: Female
  Weight: 59 kg

DRUGS (18)
  1. PEGINTRON [Suspect]
     Indication: HEPATITIS C
     Dosage: 1.0 Microgram per kilogram, qw
     Route: 058
     Dates: start: 20120530, end: 20120704
  2. PEGINTRON [Suspect]
     Dosage: 1.0 Microgram per kilogram, qw
     Route: 058
     Dates: start: 20120711, end: 20121128
  3. REBETOL [Suspect]
     Indication: HEPATITIS C
     Dosage: 200 mg, qd
     Route: 048
     Dates: start: 20120530, end: 20120704
  4. REBETOL [Suspect]
     Dosage: 200 mg, qd
     Route: 048
     Dates: start: 20120711, end: 20120904
  5. REBETOL [Suspect]
     Dosage: 400 mg, qd
     Route: 048
     Dates: start: 20120905, end: 20121023
  6. REBETOL [Suspect]
     Dosage: 200 mg, qd
     Route: 048
     Dates: start: 20121024, end: 20121204
  7. TELAVIC [Suspect]
     Indication: HEPATITIS C
     Dosage: 750 mg, qd
     Route: 048
     Dates: start: 20120530, end: 20120602
  8. TELAVIC [Suspect]
     Dosage: 500 mg, qd
     Route: 048
     Dates: start: 20120604, end: 20120619
  9. TELAVIC [Suspect]
     Dosage: 250 mg, qd
     Route: 048
     Dates: start: 20120619, end: 20120704
  10. TELAVIC [Suspect]
     Dosage: 250 mg, qd
     Route: 048
     Dates: start: 20120711
  11. GLYCYRON [Concomitant]
     Indication: HEPATITIS C
     Dosage: 150 mg, qd
     Route: 048
     Dates: end: 20120710
  12. URSO [Concomitant]
     Indication: HEPATITIS C
     Dosage: 300 mg, qd
     Route: 048
     Dates: end: 20120710
  13. NU-LOTAN [Concomitant]
     Indication: HYPERTENSION
     Dosage: 50 mg, qd
     Route: 048
     Dates: end: 20120822
  14. ALDACTONE A [Concomitant]
     Indication: HYPERTENSION
     Dosage: 20 mg, qd
     Route: 048
     Dates: end: 20120622
  15. SELECTOL [Concomitant]
     Indication: HYPERTENSION
     Dosage: 100 mg, qd
     Route: 048
     Dates: end: 20120703
  16. ADALAT CR [Concomitant]
     Indication: HYPERTENSION
     Dosage: 20 mg, qd
     Route: 048
     Dates: start: 20120530, end: 20120822
  17. SENNOSIDES [Concomitant]
     Indication: CONSTIPATION
     Dosage: 12 mg, qd
     Route: 048
     Dates: start: 20120718
  18. GASTER [Concomitant]
     Indication: GASTRITIS
     Dosage: 20 mg, qd
     Dates: start: 20120801

REACTIONS (2)
  - Renal impairment [Recovering/Resolving]
  - Renal impairment [Recovering/Resolving]
